FAERS Safety Report 6440238-5 (Version None)
Quarter: 2009Q4

REPORT INFORMATION
  Report Type: 
  Country: None (occurrence: None)
  Receive Date: 20091113
  Receipt Date: 20091104
  Transmission Date: 20100525
  Serious: Yes (Other)
  Sender: FDA-Public Use
  Company Number: FR-PFIZER INC-2009282341

PATIENT
  Age: 62 Year
  Sex: Male

DRUGS (2)
  1. TAHOR [Suspect]
     Dosage: 80 MG, UNK
     Dates: start: 20091001, end: 20091010
  2. ATENOLOL [Concomitant]

REACTIONS (3)
  - ANGIOEDEMA [None]
  - DIARRHOEA [None]
  - PRURITUS [None]
